FAERS Safety Report 12181562 (Version 1)
Quarter: 2016Q1

REPORT INFORMATION
  Report Type: Spontaneous
  Country: JP (occurrence: JP)
  Receive Date: 20160315
  Receipt Date: 20160315
  Transmission Date: 20160526
  Serious: Yes (Hospitalization)
  Sender: FDA-Public Use
  Company Number: JP-FERRINGPH-2016FE01113

PATIENT

DRUGS (2)
  1. DESMOPRESSIN KYOWA [Suspect]
     Active Substance: DESMOPRESSIN
     Indication: PRODUCT USED FOR UNKNOWN INDICATION
     Dosage: UNK UNK, 1 TIME DAILY
     Route: 045
  2. FUROSEMIDE. [Concomitant]
     Active Substance: FUROSEMIDE
     Dosage: UNK UNK, 1 TIME DAILY
     Route: 048

REACTIONS (2)
  - Cardiac arrest [Unknown]
  - Oedema [Unknown]

NARRATIVE: CASE EVENT DATE: 20160229
